FAERS Safety Report 13439558 (Version 7)
Quarter: 2017Q3

REPORT INFORMATION
  Report Type: Report from Study
  Country: CN (occurrence: CN)
  Receive Date: 20170412
  Receipt Date: 20170918
  Transmission Date: 20171127
  Serious: Yes (Hospitalization, Other)
  Sender: FDA-Public Use
  Company Number: PHHY2017CN030765

PATIENT
  Age: 47 Year
  Sex: Female
  Weight: 52 kg

DRUGS (101)
  1. TACROLIMUS. [Suspect]
     Active Substance: TACROLIMUS
     Dosage: 3 MG, QD
     Route: 065
     Dates: start: 20170303, end: 20170303
  2. NIFEDIPIN [Concomitant]
     Active Substance: NIFEDIPINE
     Indication: BLOOD PRESSURE INCREASED
     Dosage: 10 MG, QD TEMPORARILY
     Route: 048
     Dates: start: 20170224, end: 20170224
  3. BETALOC [Concomitant]
     Active Substance: METOPROLOL TARTRATE
     Indication: RENAL HYPERTENSION
     Dosage: 25 MG, QD
     Route: 065
     Dates: start: 20170307
  4. ALPROSTADIL. [Concomitant]
     Active Substance: ALPROSTADIL
     Dosage: 2 ML, TEMPORARILY ONCE
     Route: 041
     Dates: start: 20170306, end: 20170306
  5. BUCLADESINE [Concomitant]
     Indication: PRODUCT USED FOR UNKNOWN INDICATION
     Dosage: 80 MG, QD
     Route: 042
     Dates: start: 20160909, end: 20160909
  6. CANCIDAS [Concomitant]
     Active Substance: CASPOFUNGIN ACETATE
     Dosage: 50 MG, QD
     Route: 042
     Dates: start: 20160912, end: 20160915
  7. CEFOPERAZONE + SULBACTAM [Concomitant]
     Dosage: 1.5 G, Q12H
     Route: 042
     Dates: start: 20160913, end: 20160922
  8. TORASEMIDE [Concomitant]
     Active Substance: TORSEMIDE
     Dosage: 20 MG, QD
     Route: 041
     Dates: start: 20160911, end: 20160911
  9. TACROLIMUS. [Suspect]
     Active Substance: TACROLIMUS
     Dosage: 1 MG, QD
     Route: 065
     Dates: start: 20160912, end: 20160913
  10. TACROLIMUS. [Suspect]
     Active Substance: TACROLIMUS
     Dosage: 5 MG, QD
     Route: 065
     Dates: start: 20170217, end: 20170302
  11. METHYLPREDNISOLONE ACETATE. [Suspect]
     Active Substance: METHYLPREDNISOLONE ACETATE
     Dosage: 10 MG, QD
     Route: 065
     Dates: start: 20161215
  12. ADALAT [Concomitant]
     Active Substance: NIFEDIPINE
     Indication: BLOOD PRESSURE INCREASED
     Dosage: 30 MG, BID
     Route: 048
     Dates: start: 20160923, end: 20161115
  13. ALPROSTADIL. [Concomitant]
     Active Substance: ALPROSTADIL
     Indication: PRODUCT USED FOR UNKNOWN INDICATION
     Dosage: 10 UG, BID TEMPORARILY
     Route: 042
     Dates: start: 20160909, end: 20160909
  14. AMBROXOL HYDROCHLORIDE [Concomitant]
     Active Substance: AMBROXOL HYDROCHLORIDE
     Indication: PRODUCT USED FOR UNKNOWN INDICATION
     Dosage: 60 MG, BID
     Route: 042
     Dates: start: 20160909, end: 20160909
  15. ANDROGRAPHOLIDE [Concomitant]
     Active Substance: ANDROGRAPHOLIDE
     Indication: PRODUCT USED FOR UNKNOWN INDICATION
     Dosage: 12 ML, QD
     Route: 042
     Dates: start: 20160909, end: 20160909
  16. CALCITRIOL. [Concomitant]
     Active Substance: CALCITRIOL
     Indication: OSTEOPOROSIS PROPHYLAXIS
     Dosage: 0.25 UG, QD
     Route: 048
     Dates: start: 20161116
  17. CETIRIZINE HYDROCHLORIDE. [Concomitant]
     Active Substance: CETIRIZINE HYDROCHLORIDE
     Indication: PRODUCT USED FOR UNKNOWN INDICATION
     Dosage: 1 DF, QD
     Route: 048
     Dates: start: 20161122, end: 20161214
  18. TORASEMIDE [Concomitant]
     Active Substance: TORSEMIDE
     Dosage: 10 MG, TEMPORARILY ONLY ONCE
     Route: 048
     Dates: start: 20170301, end: 20170301
  19. TORASEMIDE [Concomitant]
     Active Substance: TORSEMIDE
     Dosage: 20 MG, TEMPORARILY ONLY ONCE
     Route: 048
     Dates: start: 20170302, end: 20170302
  20. LACTATED RINGERS [Concomitant]
     Active Substance: CALCIUM CHLORIDE\POTASSIUM CHLORIDE\SODIUM CHLORIDE\SODIUM LACTATE
     Dosage: 500 ML, QD TEMPORARILY
     Route: 042
     Dates: start: 20160910, end: 20160910
  21. URAPIDIL HCL [Concomitant]
     Indication: BLOOD PRESSURE INCREASED
     Dosage: 250 MG, QD TEMPORARILY
     Route: 042
     Dates: start: 20160909, end: 20160909
  22. SODIUM BICARBONATE. [Concomitant]
     Active Substance: SODIUM BICARBONATE
     Indication: PRODUCT USED FOR UNKNOWN INDICATION
     Dosage: 125 ML, QD TEMPORARILY
     Route: 042
     Dates: start: 20160910, end: 20160910
  23. LOXOPROFEN SODIUM [Concomitant]
     Active Substance: LOXOPROFEN SODIUM
     Indication: ANALGESIC THERAPY
     Dosage: 60 MG, TEMPORARILY ONCE
     Route: 048
     Dates: start: 20170124, end: 20170124
  24. LOSEC [Concomitant]
     Active Substance: OMEPRAZOLE
     Indication: PROPHYLAXIS AGAINST GASTROINTESTINAL ULCER
     Dosage: 40 MG, QD TEMPORARILY
     Route: 042
     Dates: start: 20160909, end: 20160909
  25. RECOMBINANT HUMAN ERYTHROPOIETIN [Concomitant]
     Active Substance: ERYTHROPOIETIN
     Dosage: 4000 IU, TEMPORARILY ONCE
     Route: 058
     Dates: start: 20170313, end: 20170313
  26. CODEINE PHOSPHATE W/IBUPROFEN [Concomitant]
     Indication: PAIN
     Dosage: 1 DF, BID
     Route: 048
     Dates: start: 20170806
  27. MYFORTIC [Suspect]
     Active Substance: MYCOPHENOLATE SODIUM
     Dosage: 1080 MG, QD
     Route: 048
     Dates: start: 20170601
  28. BASILIXIMAB [Suspect]
     Active Substance: BASILIXIMAB
     Indication: RENAL TRANSPLANT
     Dosage: 20 MG, QD
     Route: 065
     Dates: start: 20160909, end: 20160909
  29. TACROLIMUS. [Suspect]
     Active Substance: TACROLIMUS
     Dosage: 4 MG, QD
     Route: 065
     Dates: start: 20160930, end: 20161019
  30. TACROLIMUS. [Suspect]
     Active Substance: TACROLIMUS
     Dosage: 4 MG, QD
     Route: 065
     Dates: start: 20170209, end: 20170216
  31. METHYLPREDNISOLONE. [Suspect]
     Active Substance: METHYLPREDNISOLONE
     Indication: PRODUCT USED FOR UNKNOWN INDICATION
     Dosage: 1000 MG, QD
     Route: 065
     Dates: start: 20160909, end: 20160909
  32. METHYLPREDNISOLONE. [Suspect]
     Active Substance: METHYLPREDNISOLONE
     Dosage: 250 MG, QD
     Route: 065
     Dates: start: 20160912, end: 20160914
  33. CANCIDAS [Concomitant]
     Active Substance: CASPOFUNGIN ACETATE
     Indication: INFECTION PROPHYLAXIS
     Dosage: 50 MG, QD TEMPORARILY
     Route: 042
     Dates: start: 20160911, end: 20160911
  34. TORASEMIDE [Concomitant]
     Active Substance: TORSEMIDE
     Dosage: 20 MG, QD
     Route: 041
     Dates: start: 20160912, end: 20160912
  35. LEVOCARNITINE. [Concomitant]
     Active Substance: LEVOCARNITINE
     Indication: PRODUCT USED FOR UNKNOWN INDICATION
     Dosage: 2 G, QD TEMPORARILY
     Route: 042
     Dates: start: 20160909, end: 20160909
  36. ROCEPHIN [Concomitant]
     Active Substance: CEFTRIAXONE SODIUM
     Dosage: 2 G, QD TEMPORARILY
     Route: 042
     Dates: start: 20160910, end: 20160910
  37. DIOVAN [Concomitant]
     Active Substance: VALSARTAN
     Dosage: 80 MG, BID
     Route: 048
     Dates: start: 20160911, end: 20160922
  38. DIOVAN [Concomitant]
     Active Substance: VALSARTAN
     Dosage: 80 MG, QD
     Route: 065
     Dates: start: 20170119
  39. ALPROSTADIL. [Concomitant]
     Active Substance: ALPROSTADIL
     Dosage: 5 UG, BID TEMPORARILY
     Route: 042
     Dates: start: 20160910, end: 20160910
  40. LIDOCAINE HYDROCHLORIDE. [Concomitant]
     Active Substance: LIDOCAINE HYDROCHLORIDE
     Dosage: 1 G, QD
     Route: 042
     Dates: start: 20170224, end: 20170224
  41. RABEPRAZOLE SODIUM. [Concomitant]
     Active Substance: RABEPRAZOLE SODIUM
     Dosage: 20 MG, QD
     Route: 048
     Dates: start: 20160923
  42. MYFORTIC [Suspect]
     Active Substance: MYCOPHENOLATE SODIUM
     Indication: RENAL TRANSPLANT
     Dosage: 1440 MG, QD
     Route: 048
     Dates: start: 20160910, end: 20160929
  43. MYFORTIC [Suspect]
     Active Substance: MYCOPHENOLATE SODIUM
     Dosage: 720 MG, QD
     Route: 048
     Dates: start: 20170119, end: 20170216
  44. BASILIXIMAB [Suspect]
     Active Substance: BASILIXIMAB
     Indication: IMMUNOSUPPRESSANT DRUG THERAPY
     Dosage: 20 MG, QD
     Route: 065
     Dates: start: 20160913, end: 20160913
  45. TACROLIMUS. [Suspect]
     Active Substance: TACROLIMUS
     Indication: IMMUNOSUPPRESSANT DRUG THERAPY
     Dosage: 4 MG, QD
     Route: 065
     Dates: start: 20160911, end: 20160911
  46. TACROLIMUS. [Suspect]
     Active Substance: TACROLIMUS
     Dosage: 1 MG, QD
     Route: 065
     Dates: start: 20170304
  47. METHYLPREDNISOLONE ACETATE. [Suspect]
     Active Substance: METHYLPREDNISOLONE ACETATE
     Dosage: 15 MG, QD
     Route: 065
     Dates: start: 20161122, end: 20161214
  48. DIOVAN [Concomitant]
     Active Substance: VALSARTAN
     Indication: RENAL HYPERTENSION
     Dosage: 80 MG, BID TEMPORARILY
     Route: 048
     Dates: start: 20160910, end: 20160910
  49. INSULIN [Concomitant]
     Active Substance: INSULIN NOS
     Indication: BLOOD GLUCOSE ABNORMAL
     Dosage: 80 IU, QD TEMPORARILY
     Route: 042
     Dates: start: 20160909, end: 20160909
  50. INSULIN [Concomitant]
     Active Substance: INSULIN NOS
     Dosage: 6 IU, TEMPORARILY 7 TIMES
     Route: 042
     Dates: start: 20160910, end: 20160910
  51. LIPITOR [Concomitant]
     Active Substance: ATORVASTATIN CALCIUM
     Dosage: 10 MG, TID
     Route: 048
     Dates: start: 20161201, end: 20170216
  52. LOSEC [Concomitant]
     Active Substance: OMEPRAZOLE
     Dosage: 40 MG, QD TEMPORARILY
     Route: 042
     Dates: start: 20160910, end: 20160910
  53. RABEPRAZOLE SODIUM. [Concomitant]
     Active Substance: RABEPRAZOLE SODIUM
     Indication: PRODUCT USED FOR UNKNOWN INDICATION
     Dosage: 20 MG, QD
     Route: 048
     Dates: start: 20160917, end: 20160922
  54. METOPROLOL SUCCINATE. [Concomitant]
     Active Substance: METOPROLOL SUCCINATE
     Indication: PRODUCT USED FOR UNKNOWN INDICATION
     Dosage: 47.5 MG, TEMPORARILY ONCE
     Route: 065
     Dates: start: 20170225, end: 20170225
  55. RECOMBINANT HUMAN ERYTHROPOIETIN [Concomitant]
     Active Substance: ERYTHROPOIETIN
     Dosage: 4000 IU, TEMPORARILY ONCE
     Route: 058
     Dates: start: 20170309, end: 20170309
  56. SODIUM CHLORIDE. [Concomitant]
     Active Substance: SODIUM CHLORIDE
     Indication: PRODUCT USED FOR UNKNOWN INDICATION
     Dosage: 100 ML, QD
     Route: 065
     Dates: start: 20170307, end: 20170313
  57. MYFORTIC [Suspect]
     Active Substance: MYCOPHENOLATE SODIUM
     Indication: IMMUNOSUPPRESSANT DRUG THERAPY
     Dosage: 1080 MG, QD
     Route: 048
     Dates: start: 20160930, end: 20161115
  58. MYFORTIC [Suspect]
     Active Substance: MYCOPHENOLATE SODIUM
     Dosage: 540 MG, QD
     Route: 048
     Dates: start: 20161215, end: 20170118
  59. MYFORTIC [Suspect]
     Active Substance: MYCOPHENOLATE SODIUM
     Dosage: 1080 MG, QD
     Route: 048
     Dates: start: 20170217, end: 20170419
  60. TACROLIMUS. [Suspect]
     Active Substance: TACROLIMUS
     Dosage: 6 MG, QD
     Route: 065
     Dates: start: 20160913, end: 20160929
  61. ADALAT [Concomitant]
     Active Substance: NIFEDIPINE
     Dosage: 30 MG, BID
     Route: 048
     Dates: start: 20170209
  62. ALANYL GLUTAMINE [Concomitant]
     Active Substance: ALANYL GLUTAMINE
     Indication: PRODUCT USED FOR UNKNOWN INDICATION
     Dosage: 30 G, QD TEMPORARILY
     Route: 042
     Dates: start: 20160909, end: 20160909
  63. ALPROSTADIL. [Concomitant]
     Active Substance: ALPROSTADIL
     Dosage: 5 UG, Q6H
     Route: 042
     Dates: start: 20160911, end: 20160915
  64. TORASEMIDE [Concomitant]
     Active Substance: TORSEMIDE
     Indication: POLYURIA
     Dosage: 20 MG, TID
     Route: 041
     Dates: start: 20160910, end: 20160910
  65. LACTATED RINGERS [Concomitant]
     Active Substance: CALCIUM CHLORIDE\POTASSIUM CHLORIDE\SODIUM CHLORIDE\SODIUM LACTATE
     Indication: ACID BASE BALANCE ABNORMAL
     Dosage: 500 ML, QD TEMPORARILY
     Route: 042
     Dates: start: 20160909, end: 20160909
  66. LACTATED RINGERS [Concomitant]
     Active Substance: CALCIUM CHLORIDE\POTASSIUM CHLORIDE\SODIUM CHLORIDE\SODIUM LACTATE
     Dosage: 500 ML, TID TEMPORARILY
     Route: 042
     Dates: start: 20160910, end: 20160910
  67. INSULIN [Concomitant]
     Active Substance: INSULIN NOS
     Dosage: 6 IU, TEMPORARILY 6 TIMES
     Route: 042
     Dates: start: 20160909, end: 20160909
  68. LEVOCARNITINE. [Concomitant]
     Active Substance: LEVOCARNITINE
     Dosage: 2 G, QD TEMPORARILY
     Route: 042
     Dates: start: 20160910, end: 20160910
  69. METOPROLOL TARTRATE. [Concomitant]
     Active Substance: METOPROLOL TARTRATE
     Indication: BLOOD PRESSURE INCREASED
     Dosage: 25 MG, QD
     Route: 048
     Dates: start: 20170307
  70. MECOBALAMIN [Concomitant]
     Active Substance: METHYLCOBALAMIN
     Indication: PAIN
     Dosage: 500 UG, TID
     Route: 048
     Dates: start: 20170811
  71. MYFORTIC [Suspect]
     Active Substance: MYCOPHENOLATE SODIUM
     Dosage: 720 MG, QD
     Route: 048
     Dates: start: 20170420, end: 20170531
  72. TACROLIMUS. [Suspect]
     Active Substance: TACROLIMUS
     Dosage: 3 MG, QD
     Route: 065
     Dates: start: 20161020, end: 20170118
  73. TACROLIMUS. [Suspect]
     Active Substance: TACROLIMUS
     Dosage: 3.5 MG, QD
     Route: 065
     Dates: start: 20170119, end: 20170208
  74. METHYLPREDNISOLONE ACETATE. [Suspect]
     Active Substance: METHYLPREDNISOLONE ACETATE
     Dosage: 10 MG, QD
     Route: 065
     Dates: start: 20161020, end: 20161121
  75. DIOVAN [Concomitant]
     Active Substance: VALSARTAN
     Dosage: 80 MG, BID
     Route: 048
     Dates: start: 20160923, end: 20161115
  76. ADALAT [Concomitant]
     Active Substance: NIFEDIPINE
     Indication: RENAL HYPERTENSION
     Dosage: 30 MG, BID
     Route: 048
     Dates: start: 20160910, end: 20160910
  77. NIFEDIPIN [Concomitant]
     Active Substance: NIFEDIPINE
     Indication: BLOOD PRESSURE INCREASED
     Dosage: 30 MG, BID
     Route: 048
     Dates: start: 20160911, end: 20160922
  78. CALCIUM GLUCONATE. [Concomitant]
     Active Substance: CALCIUM GLUCONATE
     Indication: HYPOKALAEMIA
     Dosage: 1 G, QD
     Route: 042
     Dates: start: 20160909, end: 20160909
  79. CEFOPERAZONE + SULBACTAM [Concomitant]
     Indication: INFECTION PROPHYLAXIS
     Dosage: 1.5 G, BID
     Route: 042
     Dates: start: 20160912, end: 20160912
  80. LACTATED RINGERS [Concomitant]
     Active Substance: CALCIUM CHLORIDE\POTASSIUM CHLORIDE\SODIUM CHLORIDE\SODIUM LACTATE
     Dosage: 500 ML, QD TEMPORARILY
     Dates: start: 20160911, end: 20160911
  81. LIDOCAINE HYDROCHLORIDE. [Concomitant]
     Active Substance: LIDOCAINE HYDROCHLORIDE
     Indication: ANAESTHESIA
     Dosage: 0.1 G, TEMPORARILY ONCE
     Route: 065
     Dates: start: 20170124, end: 20170124
  82. INSULIN [Concomitant]
     Active Substance: INSULIN NOS
     Dosage: 80 IU, TEMPORARILY ONCE
     Route: 042
     Dates: start: 20160910, end: 20160910
  83. INSULIN [Concomitant]
     Active Substance: INSULIN NOS
     Dosage: 6 IU, TEMPORARILY TWICE
     Route: 042
     Dates: start: 20160911, end: 20160911
  84. LIPITOR [Concomitant]
     Active Substance: ATORVASTATIN CALCIUM
     Indication: LIPIDS INCREASED
     Dosage: 20 MG, QD
     Route: 048
     Dates: start: 20161116, end: 20161130
  85. RECOMBINANT HUMAN ERYTHROPOIETIN [Concomitant]
     Active Substance: ERYTHROPOIETIN
     Indication: ANAEMIA PROPHYLAXIS
     Dosage: 4000 IU, TIW TEMPORARILY ONCE
     Route: 058
     Dates: start: 20170302, end: 20170302
  86. MYFORTIC [Suspect]
     Active Substance: MYCOPHENOLATE SODIUM
     Dosage: 720 MG, QD
     Route: 048
     Dates: start: 20161116, end: 20161214
  87. TACROLIMUS. [Suspect]
     Active Substance: TACROLIMUS
     Indication: RENAL INJURY
     Dosage: 4 MG, QD
     Route: 065
     Dates: start: 20160912, end: 20160912
  88. METHYLPREDNISOLONE ACETATE. [Suspect]
     Active Substance: METHYLPREDNISOLONE ACETATE
     Indication: PRODUCT USED FOR UNKNOWN INDICATION
     Dosage: 30 MG, QD
     Route: 065
     Dates: start: 20160914, end: 20160918
  89. METHYLPREDNISOLONE ACETATE. [Suspect]
     Active Substance: METHYLPREDNISOLONE ACETATE
     Dosage: 25 MG, QD
     Route: 065
     Dates: start: 20160919, end: 20160929
  90. METHYLPREDNISOLONE ACETATE. [Suspect]
     Active Substance: METHYLPREDNISOLONE ACETATE
     Dosage: 15 MG, QD
     Route: 065
     Dates: start: 20160930, end: 20161019
  91. METHYLPREDNISOLONE. [Suspect]
     Active Substance: METHYLPREDNISOLONE
     Dosage: 500 MG, QD
     Route: 065
     Dates: start: 20160910, end: 20160911
  92. ALPROSTADIL. [Concomitant]
     Active Substance: ALPROSTADIL
     Dosage: 2 ML, QD
     Route: 041
     Dates: start: 20170307, end: 20170313
  93. AMBROXOL HYDROCHLORIDE [Concomitant]
     Active Substance: AMBROXOL HYDROCHLORIDE
     Dosage: 30 MG, QD
     Route: 055
     Dates: start: 20161010, end: 20161010
  94. AMBROXOL HYDROCHLORIDE [Concomitant]
     Active Substance: AMBROXOL HYDROCHLORIDE
     Dosage: 60 MG, BID
     Route: 042
     Dates: start: 20160910, end: 20160910
  95. TORASEMIDE [Concomitant]
     Active Substance: TORSEMIDE
     Dosage: 20 MG, QD
     Route: 048
     Dates: start: 20170303, end: 20170313
  96. DOXAZOSIN MESYLATE. [Concomitant]
     Active Substance: DOXAZOSIN MESYLATE
     Indication: PRODUCT USED FOR UNKNOWN INDICATION
     Dosage: 4 MG, QD
     Route: 048
     Dates: start: 20170227, end: 20170309
  97. LOSEC [Concomitant]
     Active Substance: OMEPRAZOLE
     Dosage: 40 MG, QD
     Route: 042
     Dates: start: 20160911, end: 20160917
  98. EBASTINE [Concomitant]
     Active Substance: EBASTINE
     Indication: HYPERSENSITIVITY
     Dosage: 1 DF, QD
     Route: 048
     Dates: start: 20161122, end: 20161214
  99. ROCEPHIN [Concomitant]
     Active Substance: CEFTRIAXONE SODIUM
     Indication: INFECTION PROPHYLAXIS
     Dosage: 2 G, QD TEMPORARILY
     Route: 042
     Dates: start: 20160909, end: 20160909
  100. ROCEPHIN [Concomitant]
     Active Substance: CEFTRIAXONE SODIUM
     Dosage: 2 G, QD
     Route: 042
     Dates: start: 20160911, end: 20160912
  101. RECOMBINANT HUMAN ERYTHROPOIETIN [Concomitant]
     Active Substance: ERYTHROPOIETIN
     Dosage: 4000 IU, TEMPORARILY ONCE
     Route: 058
     Dates: start: 20170306, end: 20170306

REACTIONS (7)
  - Blood creatinine increased [Not Recovered/Not Resolved]
  - Leukopenia [Recovered/Resolved]
  - Kidney transplant rejection [Not Recovered/Not Resolved]
  - Enteritis [Recovering/Resolving]
  - Herpes zoster [Not Recovered/Not Resolved]
  - Influenza [Recovering/Resolving]
  - Nephropathy toxic [Not Recovered/Not Resolved]

NARRATIVE: CASE EVENT DATE: 20161129
